FAERS Safety Report 9224904 (Version 7)
Quarter: 2013Q4

REPORT INFORMATION
  Report Type: Spontaneous
  Country: GB (occurrence: None)
  Receive Date: 20130409
  Receipt Date: 20131121
  Transmission Date: 20140711
  Serious: Yes (Hospitalization, Other)
  Sender: FDA-Public Use
  Company Number: AUR-APL-2013-02702

PATIENT
  Age: 71 Year
  Sex: Female
  Weight: 57 kg

DRUGS (19)
  1. SIMVASTATIN [Suspect]
     Indication: INFECTION
     Dosage: STOPPED?
  2. CUBICIN [Suspect]
     Indication: ARTHRITIS INFECTIVE
     Dosage: 350 MG (350 MG, 1 IN 1 D), INTRAVENOUS
     Route: 042
     Dates: start: 20130306, end: 20130310
  3. ASPIRIN (ACETYLSALICYLIC ACID) [Concomitant]
  4. BENDROFLUAZIDE (BENDROFLUMETHIAZIDE) [Concomitant]
  5. CHLORPHENAMINE (CHLORPHENAMINE) [Concomitant]
  6. CIPROFLOXACIN (CIPROFLOXACIN) [Concomitant]
  7. CO-CODAMOL (PANADEINE CO) [Concomitant]
  8. CYCLIZINE (CYCLIZINE) [Concomitant]
  9. ENOXAPARIN (ENOXAPARIN) [Concomitant]
  10. GENTAMICIN (GENTAMICIN) [Concomitant]
  11. MOMETASONE FUROATE (MOMETASONE FUROATE) [Concomitant]
  12. MORPHINE SULFATE (MORPHINE SULFATE) INJECTION [Concomitant]
  13. OMEPRAZOLE (OMEPRAZOLE) [Concomitant]
  14. ONDANSETRON (ONDANSETRON) [Concomitant]
  15. PARACETAMOL (PARACETAMOL) [Concomitant]
  16. RIFAMPICIN (RIFAMPICIN) [Concomitant]
  17. SANDO-K (POTASSIUM BICARBONATE) [Concomitant]
  18. TRAMADOL (TRAMADOL) [Concomitant]
  19. VANCOMYCIN (VANCOMYCIN) [Concomitant]

REACTIONS (6)
  - Atrial fibrillation [None]
  - Tachycardia [None]
  - Blood creatine phosphokinase increased [None]
  - Infection [None]
  - Off label use [None]
  - Heart rate irregular [None]
